FAERS Safety Report 5169015-2 (Version None)
Quarter: 2006Q4

REPORT INFORMATION
  Report Type: 
  Country: None (occurrence: None)
  Receive Date: 20061204
  Receipt Date: 20061123
  Transmission Date: 20070319
  Serious: Yes (Other)
  Sender: FDA-Public Use
  Company Number: 2006145593

PATIENT
  Age: 8 Year
  Sex: Male

DRUGS (1)
  1. KOAPECTATE (BISMUTH SUBSALICYLATE) [Suspect]
     Dosage: WHOLE BOTTLE ONCE, ORAL
     Route: 048
     Dates: start: 20061123, end: 20061123

REACTIONS (2)
  - ABDOMINAL PAIN UPPER [None]
  - ACCIDENTAL DRUG INTAKE BY CHILD [None]
